FAERS Safety Report 7970983-1 (Version None)
Quarter: 2011Q4

REPORT INFORMATION
  Report Type: 
  Country: None (occurrence: None)
  Receive Date: 20111212
  Receipt Date: 20110707
  Transmission Date: 20120403
  Serious: No
  Sender: FDA-Public Use
  Company Number: US-COVIDIEN/TYCO HEALTHCARE/MALLINCKRODT-T201101384

PATIENT
  Sex: Female
  Weight: 90.703 kg

DRUGS (1)
  1. OPTIMARK [Suspect]
     Dosage: 18 ML, UNK
     Route: 042
     Dates: start: 20110627, end: 20110627

REACTIONS (2)
  - URTICARIA [None]
  - EXCORIATION [None]
